FAERS Safety Report 8421849-4 (Version None)
Quarter: 2012Q2

REPORT INFORMATION
  Report Type: 
  Country: None (occurrence: None)
  Receive Date: 20120605
  Receipt Date: 20120605
  Transmission Date: 20120825
  Serious: Yes (Hospitalization, Other)
  Sender: FDA-Public Use
  Company Number: None

PATIENT
  Age: 54 Year
  Sex: Female
  Weight: 49.8957 kg

DRUGS (1)
  1. OXYCODONE HCL [Suspect]
     Indication: JOINT SURGERY
     Dosage: 1 TABLET - 6 HRS
     Dates: start: 20120508, end: 20120512

REACTIONS (6)
  - NAUSEA [None]
  - PRESYNCOPE [None]
  - CONSTIPATION [None]
  - ASTHENIA [None]
  - VOMITING [None]
  - INSOMNIA [None]
